FAERS Safety Report 5009090-9 (Version None)
Quarter: 2006Q2

REPORT INFORMATION
  Report Type: 
  Country: None (occurrence: None)
  Receive Date: 20060523
  Receipt Date: 20060517
  Transmission Date: 20061013
  Serious: Yes (Other)
  Sender: FDA-Public Use
  Company Number: DE-ABBOTT-06P-062-0333436-00

PATIENT
  Sex: Male

DRUGS (1)
  1. ERGENYL TABLETS [Suspect]
     Indication: PSYCHOTIC DISORDER
     Route: 048
     Dates: start: 20040101

REACTIONS (1)
  - BLOOD CREATINE PHOSPHOKINASE INCREASED [None]
